FAERS Safety Report 9648328 (Version 2)
Quarter: 2013Q4

REPORT INFORMATION
  Report Type: Spontaneous
  Country: US (occurrence: US)
  Receive Date: 20131028
  Receipt Date: 20131031
  Transmission Date: 20140711
  Serious: No
  Sender: FDA-Public Use
  Company Number: US-PFIZER INC-2013306578

PATIENT
  Sex: Male

DRUGS (2)
  1. LYRICA [Suspect]
     Indication: NEUROPATHY PERIPHERAL
     Dosage: 75 MG, 2X/DAY
     Dates: start: 201310
  2. LYRICA [Suspect]
     Indication: PAIN
     Dosage: UNK

REACTIONS (5)
  - Off label use [Unknown]
  - Pain [Unknown]
  - Urticaria [Unknown]
  - Pruritus [Unknown]
  - Somnolence [Unknown]
